FAERS Safety Report 4895485-0 (Version None)
Quarter: 2005Q4

REPORT INFORMATION
  Report Type: 
  Country: None (occurrence: None)
  Receive Date: 20051220
  Receipt Date: 20050613
  Transmission Date: 20060501
  Serious: Yes (Hospitalization)
  Sender: FDA-Public Use
  Company Number: US138166

PATIENT
  Age: 48 Year
  Sex: Male

DRUGS (2)
  1. ENBREL [Suspect]
     Indication: PSORIASIS
     Dosage: 50 MG, 2 IN 1 WEEKS, SC
     Route: 058
     Dates: start: 20050301, end: 20050401
  2. PREDNISONE [Suspect]
     Dosage: 7.5 MG, 1 IN 1 DAYS

REACTIONS (2)
  - PNEUMONIA STREPTOCOCCAL [None]
  - TOXIC SHOCK SYNDROME [None]
